FAERS Safety Report 7692439-6 (Version None)
Quarter: 2011Q3

REPORT INFORMATION
  Report Type: 
  Country: None (occurrence: None)
  Receive Date: 20110818
  Receipt Date: 20110811
  Transmission Date: 20111222
  Serious: Yes (Death)
  Sender: FDA-Public Use
  Company Number: JP-GENENTECH-322884

PATIENT
  Age: 75 Year
  Sex: Female

DRUGS (10)
  1. ETOPOSIDE [Suspect]
     Indication: B-CELL LYMPHOMA
  2. DOXORUBICIN HYDROCHLORIDE [Suspect]
     Indication: B-CELL LYMPHOMA
  3. PREDNISOLONE [Suspect]
     Indication: B-CELL LYMPHOMA
  4. VINCRISTINE SULFATE [Suspect]
     Indication: B-CELL LYMPHOMA
  5. CARBOPLATIN [Suspect]
     Indication: B-CELL LYMPHOMA
  6. RITUXAN [Suspect]
     Indication: B-CELL LYMPHOMA
  7. IFOSFAMIDE [Suspect]
     Indication: B-CELL LYMPHOMA
  8. DEXAMETHASONE [Suspect]
     Indication: B-CELL LYMPHOMA
  9. FLUDARABINE PHOSPHATE [Suspect]
     Indication: B-CELL LYMPHOMA
  10. CYCLOPHOSPHAMIDE [Suspect]
     Indication: B-CELL LYMPHOMA

REACTIONS (1)
  - NEUROENDOCRINE CARCINOMA OF THE SKIN [None]
